FAERS Safety Report 9088943 (Version 1)
Quarter: 2013Q1

REPORT INFORMATION
  Report Type: Spontaneous
  Country: ES (occurrence: ES)
  Receive Date: 20130131
  Receipt Date: 20130131
  Transmission Date: 20140127
  Serious: Yes (Life-Threatening, Hospitalization)
  Sender: FDA-Public Use
  Company Number: PHHY2013ES008520

PATIENT
  Age: 59 Year
  Sex: Female

DRUGS (10)
  1. ANAFRANIL [Suspect]
     Indication: INTENTIONAL OVERDOSE
     Dosage: 12 DF, DAILY
     Route: 048
     Dates: start: 20120630, end: 20120630
  2. CLOTIAPINE [Interacting]
     Indication: INTENTIONAL OVERDOSE
     Dosage: UNK UKN, UNK
     Route: 048
     Dates: start: 20120630, end: 20120630
  3. ESCITALOPRAM [Interacting]
     Indication: INTENTIONAL OVERDOSE
     Dosage: UNK UKN, UNK
     Route: 048
     Dates: start: 20120630, end: 20120630
  4. QUETIAPINE [Interacting]
     Indication: INTENTIONAL OVERDOSE
     Dosage: UNK UKN, UNK
     Route: 048
     Dates: start: 20120630, end: 20120630
  5. FLUNITRAZEPAM [Interacting]
     Indication: INTENTIONAL OVERDOSE
     Dosage: UNK UKN, UNK
     Route: 048
     Dates: start: 20120630, end: 20120630
  6. LEVOMEPROMAZINE MALEATE [Interacting]
     Indication: INTENTIONAL OVERDOSE
     Dosage: UNK UKN, UNK
     Route: 048
     Dates: start: 20120630, end: 20120630
  7. DIAZEPAM [Concomitant]
  8. CALODIS [Concomitant]
  9. LOXIFAN [Concomitant]
  10. BENADON [Concomitant]

REACTIONS (5)
  - Coma [Recovered/Resolved]
  - Coma scale abnormal [Recovered/Resolved]
  - Long QT syndrome [Recovered/Resolved]
  - Drug interaction [Recovered/Resolved]
  - Intentional overdose [Recovered/Resolved]
